FAERS Safety Report 21372765 (Version 2)
Quarter: 2024Q2

REPORT INFORMATION
  Report Type: Report from Study
  Country: US (occurrence: US)
  Receive Date: 20220924
  Receipt Date: 20240417
  Transmission Date: 20240716
  Serious: Yes (Hospitalization)
  Sender: FDA-Public Use
  Company Number: US-ABBVIE-22K-163-4427257-00

PATIENT
  Sex: Male

DRUGS (23)
  1. HUMIRA [Suspect]
     Active Substance: ADALIMUMAB
     Indication: Colitis ulcerative
     Dosage: CITRATE FREE
     Route: 058
  2. HUMIRA [Suspect]
     Active Substance: ADALIMUMAB
  3. DUREZOL [Concomitant]
     Active Substance: DIFLUPREDNATE
     Indication: Product used for unknown indication
     Dosage: 1 DROP TO EYE THREE TIMES A DAY IN RIGHT EYE
  4. 100 mg Allopurinol [Concomitant]
     Indication: Product used for unknown indication
     Dosage: 1 TABLET BY MOUTH DAILY
  5. PAROXETINE [Concomitant]
     Active Substance: PAROXETINE
     Indication: Product used for unknown indication
     Dosage: TAKE 1 TABLET BY MOUTH DAILY
  6. SIMVASTATIN [Concomitant]
     Active Substance: SIMVASTATIN
     Indication: Product used for unknown indication
     Dosage: 1 TABLET BY MOUTH DAILY
  7. 1.2 g Mesalamine [Concomitant]
     Indication: Product used for unknown indication
     Dosage: 4 TABLETS EVERY MORNING
  8. INDOMETHACIN [Concomitant]
     Active Substance: INDOMETHACIN
     Indication: Product used for unknown indication
     Dosage: BY MOUTH THREE TIMES A DAY AS NEEDED
  9. CLINDAMYCIN PHOSPHATE [Concomitant]
     Active Substance: CLINDAMYCIN PHOSPHATE
     Indication: Product used for unknown indication
     Dosage: APPLY DAILY TO SCALP
  10. CLONAZEPAM [Concomitant]
     Active Substance: CLONAZEPAM
     Indication: Product used for unknown indication
     Dosage: 1 BY MOUTH EVERY DAY
  11. LUMIGAN [Concomitant]
     Active Substance: BIMATOPROST
     Indication: Product used for unknown indication
     Dosage: 1 QTT BOTH EYES DAILY
  12. 0.4 mg Tamsulosin HCL [Concomitant]
     Indication: Product used for unknown indication
     Dosage: TAKE 1 CAPSULE BY MOUTH DAILY AT BEDTIME
  13. CHOLESTYRAMINE LIGHT [Concomitant]
     Active Substance: CHOLESTYRAMINE
     Indication: Product used for unknown indication
     Dosage: 1 PACKET DAILY AS NEEDED
  14. 125 mg Vancomycin HCL [Concomitant]
     Indication: Clostridium difficile colitis
     Dosage: 1 CAP BY MOUTH FOUR TIMES A DAY FOR 10 DAYS
     Dates: start: 20220906
  15. PREDNISONE [Concomitant]
     Active Substance: PREDNISONE
     Indication: Product used for unknown indication
     Dosage: 2 TABLETS BY MOUTH EVERY MORNING
  16. PREDNISONE [Concomitant]
     Active Substance: PREDNISONE
     Indication: Product used for unknown indication
     Dosage: 2 TABLETS BY MOUTH EVERY MORNING
  17. 10 mg Montelukast sodium [Concomitant]
     Indication: Product used for unknown indication
     Dosage: 1 BY MOUTH AT BEDTIME PLACE ON AUTOREFILL
  18. FLUTICASONE PROPIONATE [Concomitant]
     Active Substance: FLUTICASONE PROPIONATE
     Indication: Product used for unknown indication
     Dosage: ACT 2 SPRAYS EACH NOSTRIL ONCE DAILY
  19. 5 mg Cyclobenzaprine HCL [Concomitant]
     Indication: Product used for unknown indication
     Dosage: 1 BY MOUTH THREE TIMES A DAY AS NEEDED
  20. 20 mg Omeprazole [Concomitant]
     Indication: Product used for unknown indication
     Dosage: 1 BY MOUTH EVERY DAY
  21. 5 mg Amlodipine besylate [Concomitant]
     Indication: Product used for unknown indication
     Dosage: 1 TABLET BY MOUTH DAILY
  22. CANNABIDIOL\HERBALS [Concomitant]
     Active Substance: CANNABIDIOL\HERBALS
     Indication: Product used for unknown indication
     Dosage: PRN
  23. MODERNA COVID-19 VACCINE [Concomitant]
     Active Substance: ELASOMERAN
     Indication: COVID-19 immunisation
     Route: 030

REACTIONS (4)
  - Fall [Recovering/Resolving]
  - Clostridium difficile colitis [Unknown]
  - Diarrhoea [Unknown]
  - Weight decreased [Unknown]

NARRATIVE: CASE EVENT DATE: 20220101
